FAERS Safety Report 15565403 (Version 1)
Quarter: 2018Q4

REPORT INFORMATION
  Report Type: Spontaneous
  Country: US (occurrence: US)
  Receive Date: 20181024
  Receipt Date: 20181024
  Transmission Date: 20190205
  Serious: Yes (Death, Hospitalization)
  Sender: FDA-Public Use
  Company Number: None

PATIENT
  Age: 71 Year
  Sex: Female
  Weight: 57.7 kg

DRUGS (2)
  1. BEVACIZUMAB (RHUMAB VEGF) [Suspect]
     Active Substance: BEVACIZUMAB
     Dosage: ?          OTHER FREQUENCY:CYCLE: 28 DAYS ;?
     Dates: end: 20180913
  2. DOXIL [Suspect]
     Active Substance: DOXORUBICIN HYDROCHLORIDE
     Dates: end: 20180831

REACTIONS (8)
  - Refusal of treatment by patient [None]
  - Respiratory rate decreased [None]
  - Pneumatosis intestinalis [None]
  - Neutrophil count decreased [None]
  - Refusal of treatment by relative [None]
  - Headache [None]
  - Subarachnoid haemorrhage [None]
  - Neoplasm malignant [None]

NARRATIVE: CASE EVENT DATE: 20180927
